FAERS Safety Report 8545180-1 (Version None)
Quarter: 2012Q3

REPORT INFORMATION
  Report Type: 
  Country: None (occurrence: None)
  Receive Date: 20120727
  Receipt Date: 20120724
  Transmission Date: 20120928
  Serious: Yes (Hospitalization)
  Sender: FDA-Public Use
  Company Number: US-ROCHE-736475

PATIENT
  Sex: Female
  Weight: 92.5 kg

DRUGS (15)
  1. ATIVAN [Concomitant]
  2. LORTAB [Concomitant]
     Dosage: TDD: 5/500 MG
  3. PHENERGAN HCL [Concomitant]
  4. IMODIUM [Concomitant]
     Dates: start: 20100812
  5. AMBIEN CR [Concomitant]
  6. DOCETAXEL [Suspect]
     Indication: BREAST CANCER
     Dosage: DOSAGE FORM: VIALS, TOTAL DOSE: 120 MG. DATE OF LAST DOSE PRIOR TO SAE: 18 OCTOBER 2010.
     Route: 042
     Dates: start: 20100810
  7. HERCEPTIN [Suspect]
     Indication: BREAST CANCER
  8. DEXAMETHASONE [Concomitant]
     Dates: start: 20100810
  9. WELLBUTRIN [Concomitant]
  10. VISTARIL [Concomitant]
     Dates: start: 20100924
  11. CARBOPLATIN [Suspect]
     Indication: BREAST CANCER
     Dosage: DOSE LEVEL: 5 AUC, DOSAGE FORM: VIALS DATE OF LAST DOSE PRIOR TO SAE: 18 OCTOBER 2010
     Route: 042
     Dates: start: 20100810
  12. PRISTIQ [Concomitant]
  13. ANZEMET [Concomitant]
     Dates: start: 20100729, end: 20101018
  14. AVASTIN [Suspect]
     Indication: BREAST CANCER
     Dosage: LAST DOSE PRIOR TO SAE : 24/SEP/2010
     Route: 042
     Dates: start: 20100810
  15. NERIUM OLEANDER [Concomitant]
     Dosage: REPORTED AS NERIUM

REACTIONS (1)
  - CHEST PAIN [None]
